FAERS Safety Report 9130157 (Version 1)
Quarter: 2013Q1

REPORT INFORMATION
  Report Type: Report from Study
  Country: US (occurrence: US)
  Receive Date: 20130228
  Receipt Date: 20130228
  Transmission Date: 20140127
  Serious: Yes (Other)
  Sender: FDA-Public Use
  Company Number: US-US-EMD SERONO, INC.-7195283

PATIENT
  Sex: Male
  Weight: 86 kg

DRUGS (1)
  1. REBIF [Suspect]
     Indication: PRODUCT USED FOR UNKNOWN INDICATION
     Route: 058
     Dates: start: 20060108

REACTIONS (3)
  - Staphylococcal infection [Unknown]
  - Injection site infection [Unknown]
  - Injection site bruising [Unknown]
